FAERS Safety Report 12266799 (Version 1)
Quarter: 2016Q2

REPORT INFORMATION
  Report Type: Spontaneous
  Country: CA (occurrence: CA)
  Receive Date: 20160414
  Receipt Date: 20160414
  Transmission Date: 20160815
  Serious: Yes (Other)
  Sender: FDA-Public Use
  Company Number: CA-AMGEN-CANSP2016046175

PATIENT
  Age: 73 Year
  Sex: Female
  Weight: 74 kg

DRUGS (1)
  1. NEULASTA [Suspect]
     Active Substance: PEGFILGRASTIM
     Indication: PRODUCT USED FOR UNKNOWN INDICATION
     Dosage: 6.0 MG, 1 EVERY 3 WEEKS
     Route: 058

REACTIONS (1)
  - Febrile neutropenia [Unknown]
